FAERS Safety Report 9767631 (Version 2)
Quarter: 2013Q4

REPORT INFORMATION
  Report Type: Spontaneous
  Country: JP (occurrence: JP)
  Receive Date: 20131217
  Receipt Date: 20131217
  Transmission Date: 20140711
  Serious: Yes (Death, Other)
  Sender: FDA-Public Use
  Company Number: PHHY2013JP130493

PATIENT
  Age: 58 Year
  Sex: Female

DRUGS (1)
  1. ZOMETA [Suspect]
     Indication: METASTASES TO BONE
     Dosage: 4 MG, (PER ADMINISTRATION)
     Route: 041

REACTIONS (6)
  - Breast cancer [Fatal]
  - Fall [Unknown]
  - Bone disorder [Unknown]
  - Pain in extremity [Unknown]
  - Metastases to bone [Unknown]
  - Atypical femur fracture [Unknown]
